FAERS Safety Report 7287189-4 (Version None)
Quarter: 2011Q1

REPORT INFORMATION
  Report Type: 
  Country: None (occurrence: None)
  Receive Date: 20110211
  Receipt Date: 20110131
  Transmission Date: 20110831
  Serious: Yes (Other)
  Sender: FDA-Public Use
  Company Number: US-ROCHE-750227

PATIENT
  Sex: Female
  Weight: 98 kg

DRUGS (4)
  1. METHOTREXATE [Concomitant]
     Dosage: 40 UNITS = 10 MG
     Route: 058
  2. ACTEMRA [Suspect]
     Indication: RHEUMATOID ARTHRITIS
     Dosage: FORM INFUSION; DOSE: 4 MG/KG
     Route: 042
     Dates: start: 20101011
  3. ACTEMRA [Suspect]
     Dosage: THIRD INFUSION
     Route: 042
     Dates: start: 20101213
  4. PLAQUENIL [Concomitant]
     Route: 048
     Dates: start: 20060101

REACTIONS (2)
  - HYPERLIPIDAEMIA [None]
  - CEREBROVASCULAR ACCIDENT [None]
